FAERS Safety Report 9188372 (Version 1)
Quarter: 2012Q4

REPORT INFORMATION
  Report Type: 
  Country: EC (occurrence: EC)
  Receive Date: 20121205
  Receipt Date: 20121205
  Transmission Date: 20130627
  Serious: Yes (Death)
  Sender: FDA-Public Use
  Company Number: PHHY2012EC110732

PATIENT
  Age: 90 None
  Sex: Female

DRUGS (3)
  1. EXELON [Suspect]
     Dosage: 3 mg, QD
     Route: 048
     Dates: start: 20090115
  2. VASOACTIN PLUS [Concomitant]
  3. MICROSER [Concomitant]
     Indication: DIZZINESS

REACTIONS (1)
  - Respiratory arrest [Fatal]
